FAERS Safety Report 5818829-1 (Version None)
Quarter: 2008Q3

REPORT INFORMATION
  Report Type: 
  Country: None (occurrence: None)
  Receive Date: 20080723
  Receipt Date: 20080716
  Transmission Date: 20090109
  Serious: Yes (Life-Threatening)
  Sender: FDA-Public Use
  Company Number: JP-BRISTOL-MYERS SQUIBB COMPANY-14270169

PATIENT
  Age: 55 Year
  Sex: Male

DRUGS (3)
  1. EFAVIRENZ CAPS 200 MG [Suspect]
     Indication: HIV INFECTION
     Route: 048
     Dates: start: 20011007, end: 20080209
  2. EPIVIR [Suspect]
     Indication: HIV INFECTION
     Dosage: FORMULATION: TABLET
     Route: 048
     Dates: start: 20010515, end: 20080209
  3. ZIAGEN [Suspect]
     Indication: HIV INFECTION
     Dosage: FORMULATION: TABLET
     Route: 048
     Dates: start: 20011007, end: 20080209

REACTIONS (6)
  - CEREBRAL HAEMORRHAGE [None]
  - HYPERTENSION [None]
  - INSOMNIA [None]
  - NEUROPATHY PERIPHERAL [None]
  - PNEUMONIA [None]
  - SEPSIS [None]
